FAERS Safety Report 21024098 (Version 9)
Quarter: 2023Q4

REPORT INFORMATION
  Report Type: Report from Study
  Country: US (occurrence: US)
  Receive Date: 20220629
  Receipt Date: 20231122
  Transmission Date: 20240110
  Serious: No
  Sender: FDA-Public Use
  Company Number: US-NOVARTISTESTPH-NVSC2022US147595

PATIENT
  Sex: Female

DRUGS (1)
  1. XIIDRA [Suspect]
     Active Substance: LIFITEGRAST
     Indication: Product used for unknown indication
     Dosage: UNK (NOT ABLE TO OBTAIN BATCH NUMBER)
     Route: 065

REACTIONS (8)
  - Arthritis [Unknown]
  - Tremor [Unknown]
  - Cough [Unknown]
  - Product use issue [Unknown]
  - Multiple allergies [Unknown]
  - Asthenia [Unknown]
  - Mobility decreased [Unknown]
  - Visual impairment [Unknown]
